FAERS Safety Report 7214168-5 (Version None)
Quarter: 2011Q1

REPORT INFORMATION
  Report Type: 
  Country: None (occurrence: None)
  Receive Date: 20110107
  Receipt Date: 20101230
  Transmission Date: 20110831
  Serious: Yes (Death, Hospitalization)
  Sender: FDA-Public Use
  Company Number: CN-BAYER-2010-008325

PATIENT
  Sex: Male
  Weight: 55 kg

DRUGS (8)
  1. TELBIVUDINE [Concomitant]
     Indication: HEPATITIS B
     Dosage: 600 MG, UNK
     Route: 048
     Dates: start: 20100602
  2. SORAFENIB (RAF KINASE INHIBITOR) [Suspect]
     Dosage: 400 MG, BID
     Route: 048
     Dates: start: 20100817, end: 20101224
  3. UNCODEABLE ^UNCLASSIFIABLE^ [Concomitant]
     Indication: HEPATIC CIRRHOSIS
     Dosage: 450 MG, UNK
     Route: 048
     Dates: start: 20100628
  4. HERBAL PREPARATION [Concomitant]
     Indication: HEPATIC CIRRHOSIS
     Dosage: 231 MG, UNK
     Route: 048
     Dates: start: 20100528
  5. OME [Concomitant]
     Indication: PROPHYLAXIS
     Dosage: 40 MG, UNK
     Route: 042
     Dates: start: 20101223, end: 20101223
  6. CEFAMANDOLE NAFATE [Concomitant]
     Indication: PROPHYLAXIS
     Dosage: 2 G, UNK
     Route: 042
     Dates: start: 20101223, end: 20101223
  7. SORAFENIB (RAF KINASE INHIBITOR) [Suspect]
     Dosage: 400 MG, BID
     Route: 048
     Dates: start: 20100611, end: 20100808
  8. DOXORUBICIN [Suspect]

REACTIONS (1)
  - HEPATIC FAILURE [None]
